FAERS Safety Report 8989014 (Version 1)
Quarter: 2012Q4

REPORT INFORMATION
  Report Type: Spontaneous
  Country: US (occurrence: None)
  Receive Date: 20121218
  Receipt Date: 20121218
  Transmission Date: 20130627
  Serious: Yes (Other)
  Sender: FDA-Public Use
  Company Number: DSA_61352_2012

PATIENT
  Age: 29 Year
  Sex: Female

DRUGS (4)
  1. FLAGYL [Suspect]
     Dosage: (DF)
  2. STEMETIL /00013301/ (STEMETIL PROCHLORPERAZINE) (NOT SPECIFIED) [Suspect]
     Dosage: (DF)
  3. BACTRIM (BACTRIM SULFARMETHOXAZOLE/TRIMETHOPRIM) (NOT SPECIFIED) [Suspect]
     Dosage: (DF)
  4. MAXOLON (MAXOLON - METCLOPRAMIDE HYDROCHLORIDE) (NOT SPECIFIED) [Suspect]
     Dosage: (DF)

REACTIONS (1)
  - Eye swelling [None]
